FAERS Safety Report 8593371 (Version 2)
Quarter: 2013Q3

REPORT INFORMATION
  Report Type: Spontaneous
  Country: US (occurrence: US)
  Receive Date: 20120604
  Receipt Date: 20130718
  Transmission Date: 20140515
  Serious: Yes (Hospitalization, Disabling, Other)
  Sender: FDA-Public Use
  Company Number: US-ASTRAZENECA-2012SE35270

PATIENT
  Age: 52 Year
  Sex: Male
  Weight: 81.6 kg

DRUGS (21)
  1. NEXIUM [Suspect]
     Indication: GASTROOESOPHAGEAL REFLUX DISEASE
     Route: 048
     Dates: start: 1998, end: 2007
  2. NEXIUM [Suspect]
     Indication: IRRITABLE BOWEL SYNDROME
     Route: 048
     Dates: start: 1998, end: 2007
  3. NEXIUM [Suspect]
     Indication: GASTROOESOPHAGEAL REFLUX DISEASE
     Route: 048
     Dates: start: 2001
  4. NEXIUM [Suspect]
     Indication: IRRITABLE BOWEL SYNDROME
     Route: 048
     Dates: start: 2001
  5. PRILOSEC [Suspect]
     Indication: GASTROOESOPHAGEAL REFLUX DISEASE
     Dosage: TWICE DAILY
     Route: 048
     Dates: start: 1998
  6. PRILOSEC [Suspect]
     Indication: IRRITABLE BOWEL SYNDROME
     Dosage: TWICE DAILY
     Route: 048
     Dates: start: 1998
  7. PREVACID [Suspect]
     Indication: GASTROOESOPHAGEAL REFLUX DISEASE
     Dosage: ONCE A DAY
     Route: 065
     Dates: start: 1989, end: 1990
  8. PREVACID [Suspect]
     Indication: IRRITABLE BOWEL SYNDROME
     Dosage: ONCE A DAY
     Route: 065
     Dates: start: 1989, end: 1990
  9. PREVACID [Suspect]
     Indication: GASTROOESOPHAGEAL REFLUX DISEASE
     Route: 065
     Dates: start: 1998
  10. PREVACID [Suspect]
     Indication: IRRITABLE BOWEL SYNDROME
     Route: 065
     Dates: start: 1998
  11. ZANTAC [Concomitant]
     Dosage: ONCE A DAY
     Dates: start: 1997
  12. TUMS [Concomitant]
     Indication: PAIN
     Dosage: 3-4 A TIMES A DAY
     Dates: start: 1996
  13. ORENCIA [Concomitant]
     Indication: ARTHRITIS
  14. WARFARIN [Concomitant]
     Indication: COAGULOPATHY
  15. MECLIZINE [Concomitant]
     Indication: MOTION SICKNESS
  16. FOLIC ACID [Concomitant]
     Indication: PROTEIN DEFICIENCY
  17. VASTATIN [Concomitant]
     Indication: BLOOD CHOLESTEROL ABNORMAL
     Dosage: GENERIC
  18. ORPHENADRINE [Concomitant]
     Indication: MUSCLE SPASMS
  19. METFORMINE [Concomitant]
     Indication: DIABETES MELLITUS
  20. PERCOCET [Concomitant]
     Indication: PAIN
  21. OXYCONTIN [Concomitant]
     Indication: PAIN

REACTIONS (16)
  - Ankle fracture [Unknown]
  - Compression fracture [Unknown]
  - Rheumatoid arthritis [Unknown]
  - Thrombosis [Unknown]
  - Lumbar vertebral fracture [Unknown]
  - Leukaemia [Unknown]
  - Multiple fractures [Unknown]
  - Thrombocytopenia [Unknown]
  - Rib fracture [Unknown]
  - Arthritis [Unknown]
  - Diabetes mellitus [Unknown]
  - Bone disorder [Unknown]
  - Angina pectoris [Unknown]
  - Thoracic vertebral fracture [Unknown]
  - Osteoporosis [Unknown]
  - Systemic lupus erythematosus [Unknown]
